FAERS Safety Report 5031996-5 (Version None)
Quarter: 2006Q2

REPORT INFORMATION
  Report Type: 
  Country: None (occurrence: None)
  Receive Date: 20060614
  Receipt Date: 20060607
  Transmission Date: 20061013
  Serious: Yes (Other)
  Sender: FDA-Public Use
  Company Number: 200610054BBE

PATIENT
  Age: 17 Year
  Sex: Male

DRUGS (7)
  1. GAMUNEX [Suspect]
     Indication: IMMUNE SYSTEM DISORDER
     Dosage: 30 G, TOTAL DAILY, INTRAVENOUS
     Route: 042
  2. GAMUNEX [Suspect]
     Dosage: 30 G, TOTAL DAILY, INTRAVENOUS
     Route: 042
  3. GAMUNEX [Suspect]
     Dosage: 30 G, TOTAL DAILY, INTRAVENOUS
     Route: 042
  4. GAMUNEX [Suspect]
     Dosage: 30 G, TOTAL DAILY, INTRAVENOUS
     Route: 042
  5. GAMUNEX [Suspect]
     Dosage: 40 G, Q3W, INTRAVENOUS
     Route: 042
     Dates: start: 20041110
  6. GAMMAR-P I.V. [Concomitant]
  7. FLONASE [Concomitant]

REACTIONS (1)
  - HEPATITIS B [None]
